FAERS Safety Report 5607702-X (Version None)
Quarter: 2008Q1

REPORT INFORMATION
  Report Type: 
  Country: None (occurrence: None)
  Receive Date: 20080130
  Receipt Date: 20071130
  Transmission Date: 20080703
  Serious: Yes (Death, Hospitalization, Other)
  Sender: FDA-Public Use
  Company Number: PHHO2007VE11004

PATIENT
  Age: 88 Year
  Sex: Male

DRUGS (8)
  1. ZELNORM [Suspect]
     Dosage: 6 MG, BID
     Route: 048
     Dates: end: 20070201
  2. DIOVAN HCT [Suspect]
     Indication: HYPERTENSION
     Dosage: 80MG/12.5MG QD
     Route: 048
  3. AMLODIPINE [Concomitant]
     Dosage: 5 MG
  4. OMEPRAZOLE [Concomitant]
     Dosage: 20 MG
  5. HIDROSMIN [Concomitant]
     Dosage: 200 MG
  6. ASPIRIN [Concomitant]
     Dosage: 81 MG
  7. ATIVAN [Concomitant]
     Dosage: 2 MG
  8. LAZOMACINA [Concomitant]
     Dosage: 500 MG

REACTIONS (4)
  - CEREBROVASCULAR ACCIDENT [None]
  - GASTRIC DISORDER [None]
  - PNEUMONIA [None]
  - RESPIRATORY ARREST [None]
